FAERS Safety Report 14405474 (Version 2)
Quarter: 2018Q1

REPORT INFORMATION
  Report Type: Spontaneous
  Country: US (occurrence: US)
  Receive Date: 20180118
  Receipt Date: 20180122
  Transmission Date: 20180509
  Serious: No
  Sender: FDA-Public Use
  Company Number: US-PFIZER INC-2018020370

PATIENT
  Age: 90 Year
  Sex: Male

DRUGS (1)
  1. XALKORI [Suspect]
     Active Substance: CRIZOTINIB
     Indication: SMALL CELL LUNG CANCER
     Dosage: 250 MG, UNK

REACTIONS (3)
  - Foreign body in respiratory tract [Unknown]
  - Dysphagia [Unknown]
  - Product size issue [Unknown]
